FAERS Safety Report 6885961-3 (Version None)
Quarter: 2010Q3

REPORT INFORMATION
  Report Type: 
  Country: None (occurrence: None)
  Receive Date: 20100729
  Receipt Date: 20080812
  Transmission Date: 20110219
  Serious: No
  Sender: FDA-Public Use
  Company Number: US-PFIZER INC-2008041215

PATIENT
  Sex: Male
  Weight: 82 kg

DRUGS (4)
  1. CELEBREX [Suspect]
     Indication: REITER'S SYNDROME
     Dates: start: 20010101
  2. PLAQUENIL [Concomitant]
     Indication: REITER'S SYNDROME
     Dates: start: 20050101
  3. METFORMIN HYDROCHLORIDE [Concomitant]
  4. PRAVACHOL [Concomitant]

REACTIONS (2)
  - DRUG INEFFECTIVE [None]
  - EXPIRED DRUG ADMINISTERED [None]
